FAERS Safety Report 18821969 (Version 1)
Quarter: 2021Q1

REPORT INFORMATION
  Report Type: Spontaneous
  Country: US (occurrence: US)
  Receive Date: 20210202
  Receipt Date: 20210202
  Transmission Date: 20210419
  Serious: No
  Sender: FDA-Public Use
  Company Number: None

PATIENT
  Age: 77 Year
  Sex: Female
  Weight: 65.25 kg

DRUGS (4)
  1. TRAMADOL GENERIC, 50MG. [Suspect]
     Active Substance: TRAMADOL
     Indication: NEUROPATHY PERIPHERAL
     Dosage: ?          QUANTITY:120 TABLET(S);?
     Route: 048
     Dates: start: 20210114
  2. LISINOPRIL. [Concomitant]
     Active Substance: LISINOPRIL
  3. MOTRIN [Concomitant]
     Active Substance: IBUPROFEN
  4. TRAMADOL GENERIC, 50MG. [Suspect]
     Active Substance: TRAMADOL
     Indication: ARTHRITIS
     Dosage: ?          QUANTITY:120 TABLET(S);?
     Route: 048
     Dates: start: 20210114

REACTIONS (5)
  - Product quality issue [None]
  - Product physical issue [None]
  - Depression [None]
  - Drug ineffective [None]
  - Manufacturing issue [None]

NARRATIVE: CASE EVENT DATE: 20210114
